FAERS Safety Report 17673288 (Version 4)
Quarter: 2020Q4

REPORT INFORMATION
  Report Type: Spontaneous
  Country: US (occurrence: US)
  Receive Date: 20200415
  Receipt Date: 20201218
  Transmission Date: 20210113
  Serious: Yes (Hospitalization, Other)
  Sender: FDA-Public Use
  Company Number: US-PFIZER INC-2018496638

PATIENT
  Age: 73 Year
  Sex: Male
  Weight: 129.27 kg

DRUGS (2)
  1. ARTHROTEC [Suspect]
     Active Substance: DICLOFENAC SODIUM\MISOPROSTOL
     Dosage: UNK (MISOPROSTOL 0.2 MG + DICLOFENAC SODIUM 75 MG)
  2. ARTHROTEC [Suspect]
     Active Substance: DICLOFENAC SODIUM\MISOPROSTOL
     Indication: ARTHRITIS
     Dosage: UNK, 2X/DAY (75/200MCG)(TAKES ONE IN THE MORNING AND ONE AT NIGHT)

REACTIONS (5)
  - Diabetes mellitus [Unknown]
  - Localised infection [Unknown]
  - Sepsis [Unknown]
  - Gout [Not Recovered/Not Resolved]
  - Hypertension [Unknown]

NARRATIVE: CASE EVENT DATE: 2017
